FAERS Safety Report 25917443 (Version 1)
Quarter: 2025Q4

REPORT INFORMATION
  Report Type: Report from Study
  Country: CN (occurrence: CN)
  Receive Date: 20251014
  Receipt Date: 20251014
  Transmission Date: 20260117
  Serious: Yes (Other)
  Sender: ABBVIE
  Company Number: CN-ABBVIE-6500865

PATIENT
  Age: 62 Year
  Sex: Female

DRUGS (1)
  1. RINVOQ [Suspect]
     Active Substance: UPADACITINIB
     Indication: Dermatitis atopic
     Route: 048
     Dates: start: 20250506, end: 20250924

REACTIONS (2)
  - Gastrointestinal carcinoma [Unknown]
  - Haematochezia [Unknown]

NARRATIVE: CASE EVENT DATE: 20250101
